FAERS Safety Report 26191619 (Version 1)
Quarter: 2025Q4

REPORT INFORMATION
  Report Type: Spontaneous
  Country: US (occurrence: US)
  Receive Date: 20251223
  Receipt Date: 20251223
  Transmission Date: 20260118
  Serious: Yes (Hospitalization, Other)
  Sender: DR REDDYS
  Company Number: US-DRL-USA-USA/2025/12/019484

PATIENT
  Age: 80 Year
  Sex: Male

DRUGS (2)
  1. LANSOPRAZOLE [Suspect]
     Active Substance: LANSOPRAZOLE
     Indication: Product used for unknown indication
  2. METHOTREXATE [Suspect]
     Active Substance: METHOTREXATE
     Indication: Rheumatoid arthritis

REACTIONS (7)
  - Stomatitis [Unknown]
  - Pancytopenia [Recovering/Resolving]
  - Folliculitis [Recovering/Resolving]
  - Klebsiella infection [Recovering/Resolving]
  - Candida infection [Unknown]
  - Drug interaction [Recovering/Resolving]
  - Serratia infection [Recovering/Resolving]
